FAERS Safety Report 14903597 (Version 2)
Quarter: 2018Q2

REPORT INFORMATION
  Report Type: Report from Study
  Country: US (occurrence: US)
  Receive Date: 20180516
  Receipt Date: 20180615
  Transmission Date: 20180711
  Serious: Yes (Hospitalization, Other)
  Sender: FDA-Public Use
  Company Number: US-ACTELION-A-US2017-163901

PATIENT
  Age: 18 Month
  Sex: Female
  Weight: 5.44 kg

DRUGS (5)
  1. TRACLEER [Suspect]
     Active Substance: BOSENTAN
     Dosage: 32 MG, BID (3/4 TABLET)
     Route: 048
  2. SILDENAFIL CITRATE. [Concomitant]
     Active Substance: SILDENAFIL CITRATE
  3. TRACLEER [Suspect]
     Active Substance: BOSENTAN
     Dosage: 16 MG, QD
     Route: 048
     Dates: start: 20171205
  4. TRACLEER [Suspect]
     Active Substance: BOSENTAN
     Dosage: 16 MG, BID
     Route: 048
     Dates: start: 20171205
  5. TRACLEER [Suspect]
     Active Substance: BOSENTAN
     Indication: PULMONARY ARTERIAL HYPERTENSION
     Dosage: 24 MG, BID
     Route: 048

REACTIONS (14)
  - Cyanosis [Unknown]
  - Drug intolerance [Unknown]
  - Pallor [Unknown]
  - Flushing [Unknown]
  - Syncope [Unknown]
  - Erythema [Unknown]
  - Vomiting [Unknown]
  - Oedema peripheral [Unknown]
  - Respiratory arrest [Unknown]
  - Loss of consciousness [Unknown]
  - Product use issue [Unknown]
  - Seizure [Unknown]
  - Hypotonia [Unknown]
  - No adverse event [Unknown]
